FAERS Safety Report 6834364-6 (Version None)
Quarter: 2010Q3

REPORT INFORMATION
  Report Type: 
  Country: None (occurrence: None)
  Receive Date: 20100712
  Receipt Date: 20070424
  Transmission Date: 20110219
  Serious: Yes (Hospitalization, Other)
  Sender: FDA-Public Use
  Company Number: US-PFIZER INC-2007033979

PATIENT
  Age: 56 Year
  Sex: Female
  Weight: 65.8 kg

DRUGS (1)
  1. CHANTIX [Suspect]
     Indication: SMOKING CESSATION THERAPY
     Dates: start: 20061201, end: 20070417

REACTIONS (6)
  - CHOLECYSTITIS INFECTIVE [None]
  - HEPATITIS C ANTIBODY POSITIVE [None]
  - INSOMNIA [None]
  - LIVER FUNCTION TEST ABNORMAL [None]
  - VAGINAL INFECTION [None]
  - WEIGHT INCREASED [None]
